FAERS Safety Report 9116639 (Version 1)
Quarter: 2013Q1

REPORT INFORMATION
  Report Type: Spontaneous
  Country: IE (occurrence: IE)
  Receive Date: 20130225
  Receipt Date: 20130225
  Transmission Date: 20140127
  Serious: No
  Sender: FDA-Public Use
  Company Number: PHHY2013IE018280

PATIENT
  Sex: 0

DRUGS (1)
  1. LAMISIL [Suspect]

REACTIONS (1)
  - Wrong technique in drug usage process [Unknown]
